FAERS Safety Report 6893890-4 (Version None)
Quarter: 2010Q3

REPORT INFORMATION
  Report Type: 
  Country: None (occurrence: None)
  Receive Date: 20100802
  Receipt Date: 20100723
  Transmission Date: 20110219
  Serious: No
  Sender: FDA-Public Use
  Company Number: US-BIOGENIDEC-2010BI025775

PATIENT
  Age: 35 Year
  Sex: Female

DRUGS (2)
  1. TYSABRI [Suspect]
     Indication: MULTIPLE SCLEROSIS
     Route: 042
     Dates: start: 20080915, end: 20081114
  2. TYSABRI [Suspect]
     Route: 042
     Dates: start: 20090512

REACTIONS (5)
  - ASTHENIA [None]
  - DRUG ERUPTION [None]
  - HEADACHE [None]
  - NAUSEA [None]
  - URINARY TRACT INFECTION [None]
